FAERS Safety Report 10145839 (Version 1)
Quarter: 2014Q2

REPORT INFORMATION
  Report Type: Spontaneous
  Country: US (occurrence: US)
  Receive Date: 20140501
  Receipt Date: 20140501
  Transmission Date: 20141212
  Serious: No
  Sender: FDA-Public Use
  Company Number: US-ABBVIE-14P-163-1199941-00

PATIENT
  Age: 59 Year
  Sex: Female
  Weight: 58.11 kg

DRUGS (2)
  1. CREON [Suspect]
     Indication: PANCREATECTOMY
     Route: 048
     Dates: start: 2008, end: 201401
  2. CREON [Suspect]
     Route: 048
     Dates: start: 201401

REACTIONS (3)
  - Blood glucose increased [Not Recovered/Not Resolved]
  - Dyspepsia [Not Recovered/Not Resolved]
  - Diarrhoea [Not Recovered/Not Resolved]
